FAERS Safety Report 7499055-X (Version None)
Quarter: 2011Q2

REPORT INFORMATION
  Report Type: 
  Country: None (occurrence: None)
  Receive Date: 20110524
  Receipt Date: 20110505
  Transmission Date: 20111010
  Serious: Yes (Hospitalization, Other)
  Sender: FDA-Public Use
  Company Number: US-BAYER-201037979NA

PATIENT
  Age: 22 Year
  Sex: Female
  Weight: 68.027 kg

DRUGS (4)
  1. CELEXA [Concomitant]
     Indication: DEPRESSION
     Dosage: 20 MG, UNK
     Route: 048
  2. ZYRTEC [Concomitant]
     Indication: RHINITIS ALLERGIC
     Route: 048
  3. MOTRIN [Concomitant]
     Indication: PAIN
     Route: 048
  4. YASMIN [Suspect]
     Indication: PRODUCT USED FOR UNKNOWN INDICATION
     Dosage: UNK
     Route: 048
     Dates: start: 20051101, end: 20051201

REACTIONS (4)
  - PULMONARY EMBOLISM [None]
  - CHEST PAIN [None]
  - MUSCULOSKELETAL PAIN [None]
  - DYSPNOEA [None]
